FAERS Safety Report 7436899-4 (Version None)
Quarter: 2011Q2

REPORT INFORMATION
  Report Type: 
  Country: None (occurrence: None)
  Receive Date: 20110426
  Receipt Date: 20110412
  Transmission Date: 20111010
  Serious: Yes (Hospitalization)
  Sender: FDA-Public Use
  Company Number: CH-JNJFOC-20070304549

PATIENT
  Age: 60 Year
  Sex: Female

DRUGS (3)
  1. LITHIUM [Interacting]
     Indication: SCHIZOAFFECTIVE DISORDER
     Route: 065
  2. RISPERIDONE [Suspect]
     Route: 065
  3. RISPERIDONE [Suspect]
     Indication: SCHIZOAFFECTIVE DISORDER
     Route: 065

REACTIONS (2)
  - DRUG INTERACTION [None]
  - TOXIC ENCEPHALOPATHY [None]
